FAERS Safety Report 14842905 (Version 2)
Quarter: 2018Q2

REPORT INFORMATION
  Report Type: Spontaneous
  Country: DE (occurrence: DE)
  Receive Date: 20180503
  Receipt Date: 20180524
  Transmission Date: 20180711
  Serious: Yes (Other)
  Sender: FDA-Public Use
  Company Number: DE-PFIZER INC-2018046878

PATIENT
  Age: 78 Year
  Sex: Female

DRUGS (2)
  1. TAMOXIFEN [Suspect]
     Active Substance: TAMOXIFEN
     Dosage: UNK
     Route: 048
     Dates: start: 2012
  2. EXEMESTANE. [Suspect]
     Active Substance: EXEMESTANE
     Indication: BREAST CANCER FEMALE
     Dosage: 25 MG, UNK
     Route: 048
     Dates: start: 2013

REACTIONS (6)
  - Foreign body sensation in eyes [Unknown]
  - Insomnia [Unknown]
  - Neoplasm progression [Unknown]
  - Dizziness [Unknown]
  - Uterine mass [Unknown]
  - Disturbance in attention [Unknown]
